FAERS Safety Report 6443021-X (Version None)
Quarter: 2009Q4

REPORT INFORMATION
  Report Type: 
  Country: None (occurrence: None)
  Receive Date: 20091112
  Receipt Date: 20091102
  Transmission Date: 20100525
  Serious: Yes (Hospitalization)
  Sender: FDA-Public Use
  Company Number: ADR47302009

PATIENT
  Age: 68 Year
  Sex: Male

DRUGS (2)
  1. SIMVASTATIN [Suspect]
     Dosage: 20 MG
  2. AMLODIPINE [Concomitant]

REACTIONS (13)
  - ACUTE CORONARY SYNDROME [None]
  - ARTHRALGIA [None]
  - CARDIAC MURMUR [None]
  - CONFUSIONAL STATE [None]
  - DEVICE RELATED SEPSIS [None]
  - HEADACHE [None]
  - HYPERTENSION [None]
  - JOINT EFFUSION [None]
  - JOINT SWELLING [None]
  - NAUSEA [None]
  - POISONING [None]
  - STAPHYLOCOCCAL SEPSIS [None]
  - THROMBOTIC THROMBOCYTOPENIC PURPURA [None]
